FAERS Safety Report 4814036-X (Version None)
Quarter: 2005Q4

REPORT INFORMATION
  Report Type: 
  Country: None (occurrence: None)
  Receive Date: 20051028
  Receipt Date: 20050526
  Transmission Date: 20060501
  Serious: No
  Sender: FDA-Public Use
  Company Number: US-GLAXOSMITHKLINE-A0560481A

PATIENT
  Age: 62 Year
  Sex: Female

DRUGS (7)
  1. SEREVENT [Suspect]
     Indication: ASTHMA
     Dosage: 1PUFF TWICE PER DAY
     Route: 055
     Dates: start: 20050401
  2. ADVAIR DISKUS 100/50 [Suspect]
     Indication: ASTHMA
     Dosage: 1PUFF TWICE PER DAY
     Route: 055
     Dates: start: 20030101
  3. SINGULAIR [Concomitant]
     Route: 065
  4. NASONEX [Concomitant]
     Route: 065
  5. PREDNISOLONE [Concomitant]
     Route: 065
  6. LORATADINE [Concomitant]
     Route: 065
  7. QVAR [Concomitant]
     Route: 065

REACTIONS (8)
  - ABDOMINAL PAIN UPPER [None]
  - ACNE [None]
  - DENTAL DISCOMFORT [None]
  - DRY MOUTH [None]
  - EPISTAXIS [None]
  - HYPERGLYCAEMIA [None]
  - RASH [None]
  - SWELLING FACE [None]
